FAERS Safety Report 26099424 (Version 2)
Quarter: 2025Q4

REPORT INFORMATION
  Report Type: Report from Study
  Country: US (occurrence: US)
  Receive Date: 20251128
  Receipt Date: 20251226
  Transmission Date: 20260117
  Serious: Yes (Other)
  Sender: ROCHE
  Company Number: US-ROCHE-10000438414

PATIENT
  Age: 46 Year
  Sex: Female
  Weight: 94.3 kg

DRUGS (66)
  1. ACTEMRA [Suspect]
     Active Substance: TOCILIZUMAB
     Indication: Pyrexia
     Route: 042
     Dates: start: 20250212
  2. CELLCEPT [Suspect]
     Active Substance: MYCOPHENOLATE MOFETIL
     Indication: Product used for unknown indication
  3. acetazolamide crys [Concomitant]
  4. alpha lipoic acid caps [Concomitant]
  5. BUTRANS [Concomitant]
     Active Substance: BUPRENORPHINE
     Dosage: 20 MCG/HR
     Dates: start: 20230702
  6. CALCIPOTRIENE [Concomitant]
     Active Substance: CALCIPOTRIENE
     Dates: start: 20240213
  7. Carafate TABS [Concomitant]
  8. CELECOXIB [Concomitant]
     Active Substance: CELECOXIB
     Route: 048
     Dates: start: 20241120
  9. CHOLESTYRAMINE [Concomitant]
     Active Substance: CHOLESTYRAMINE
     Route: 048
  10. COLCHICINE [Concomitant]
     Active Substance: COLCHICINE
     Route: 048
     Dates: start: 20230808
  11. Colcrys TABS [Concomitant]
  12. CORTEF [Concomitant]
     Active Substance: HYDROCORTISONE
     Route: 048
  13. CVS Vitamin B-12 SUBL [Concomitant]
  14. CYCLOBENZAPRINE HYDROCHLORIDE [Concomitant]
     Active Substance: CYCLOBENZAPRINE HYDROCHLORIDE
     Route: 048
     Dates: start: 20250114
  15. DEXAMETHASONE [Concomitant]
     Active Substance: DEXAMETHASONE
     Dosage: 4 TABS DAILY
     Route: 048
  16. DEXAMETHASONE [Concomitant]
     Active Substance: DEXAMETHASONE
     Dosage: 6 TABS DAILY
     Route: 048
  17. Eliquis TABS [Concomitant]
  18. Emgality SOSY [Concomitant]
  19. EPINEPHRINE [Concomitant]
     Active Substance: EPINEPHRINE
     Indication: Hypersensitivity
     Dosage: 0.3 MG/0.3ML?SOLUTION AUTO-INJECTOR
     Route: 030
     Dates: start: 20230526
  20. ERGOCALCIFEROL [Concomitant]
     Active Substance: ERGOCALCIFEROL
  21. FLUCONAZOLE [Concomitant]
     Active Substance: FLUCONAZOLE
     Dosage: 1 TAB DAILY FOR 7 DAYS
     Route: 048
  22. FLUCONAZOLE [Concomitant]
     Active Substance: FLUCONAZOLE
     Dosage: 1 TAB DAILY FOR 3 DAYS
     Route: 048
  23. FLUOCINOLONE ACETONIDE [Concomitant]
     Active Substance: FLUOCINOLONE ACETONIDE
     Dates: start: 20240213
  24. FLUTICASONE PROPIONATE [Concomitant]
     Active Substance: FLUTICASONE PROPIONATE
     Dosage: 50 MCG/ACT
  25. LASIX [Concomitant]
     Active Substance: FUROSEMIDE
     Route: 048
     Dates: start: 20230702
  26. LASIX [Concomitant]
     Active Substance: FUROSEMIDE
     Route: 048
  27. GAMUNEX-C [Concomitant]
     Active Substance: HUMAN IMMUNOGLOBULIN G
     Dosage: 20 GM/200ML
  28. Horizant TBCR [Concomitant]
  29. ACETAMINOPHEN\HYDROCODONE [Concomitant]
     Active Substance: ACETAMINOPHEN\HYDROCODONE
     Dosage: 5-325 MG
     Route: 048
  30. HYDROCORTISONE [Concomitant]
     Active Substance: HYDROCORTISONE
     Route: 048
     Dates: start: 20240110
  31. HYDROCORTISONE [Concomitant]
     Active Substance: HYDROCORTISONE
     Dosage: PERIANAL
  32. hydrOXYzine ??? [Concomitant]
     Indication: Pruritus
     Route: 048
  33. ILARIS [Concomitant]
     Active Substance: CANAKINUMAB
     Dosage: 150 MG/ML
     Route: 058
     Dates: start: 20240910
  34. ILARIS [Concomitant]
     Active Substance: CANAKINUMAB
  35. IMITREX [Concomitant]
     Active Substance: SUMATRIPTAN SUCCINATE
  36. KETOCONAZOLE [Concomitant]
     Active Substance: KETOCONAZOLE
     Dates: start: 20240213
  37. LAGEVRIO [Concomitant]
     Active Substance: MOLNUPIRAVIR
     Route: 048
  38. LIDOCAINE HYDROCHLORIDE [Concomitant]
     Active Substance: LIDOCAINE HYDROCHLORIDE
     Indication: Oral pain
     Dosage: MOUTH/THROAT SOLUTION
  39. LIDOCAINE HYDROCHLORIDE [Concomitant]
     Active Substance: LIDOCAINE HYDROCHLORIDE
     Dosage: MOUTH/THROAT SOLUTION
     Dates: start: 20240913
  40. LORAZEPAM [Concomitant]
     Active Substance: LORAZEPAM
     Route: 048
  41. METHOCARBAMOL [Concomitant]
     Active Substance: METHOCARBAMOL
     Route: 048
     Dates: start: 20240910
  42. methyIPREDNISolone [Concomitant]
     Route: 048
     Dates: start: 20230907
  43. METOPROLOL SUCCINATE [Concomitant]
     Active Substance: METOPROLOL SUCCINATE
     Route: 048
     Dates: start: 20221104
  44. NITROFURANTOIN MONOHYDRATE MACROCRYSTALS [Concomitant]
     Active Substance: NITROFURANTOIN\NITROFURANTOIN MONOHYDRATE
     Route: 048
     Dates: start: 20250924
  45. NORETHINDRONE [Concomitant]
     Active Substance: NORETHINDRONE
     Route: 048
  46. ONDANSETRON [Concomitant]
     Active Substance: ONDANSETRON
     Indication: Nausea
     Route: 048
     Dates: start: 20231026
  47. ONDANSETRON [Concomitant]
     Active Substance: ONDANSETRON
     Route: 048
     Dates: start: 20240910
  48. OXYCODONE HYDROCHLORIDE [Concomitant]
     Active Substance: OXYCODONE HYDROCHLORIDE
     Route: 048
  49. ACETAMINOPHEN\OXYCODONE HYDROCHLORIDE [Concomitant]
     Active Substance: ACETAMINOPHEN\OXYCODONE HYDROCHLORIDE
     Dosage: 10-325 MG
     Route: 048
     Dates: start: 20231115
  50. PANTOPRAZOLE SODIUM [Concomitant]
     Active Substance: PANTOPRAZOLE SODIUM
     Route: 048
     Dates: start: 20230915
  51. PRAZOSIN HYDROCHLORIDE [Concomitant]
     Active Substance: PRAZOSIN HYDROCHLORIDE
     Indication: Erythromelalgia
     Route: 048
     Dates: start: 20230808
  52. PRAZOSIN HYDROCHLORIDE [Concomitant]
     Active Substance: PRAZOSIN HYDROCHLORIDE
  53. PREDNISONE [Concomitant]
     Active Substance: PREDNISONE
     Indication: Arthritis
     Route: 048
     Dates: start: 20230808
  54. PROMETHAZINE HYDROCHLORIDE [Concomitant]
     Active Substance: PROMETHAZINE HYDROCHLORIDE
     Indication: Nausea
     Route: 048
     Dates: start: 20240910
  55. PROMETHAZINE HYDROCHLORIDE [Concomitant]
     Active Substance: PROMETHAZINE HYDROCHLORIDE
     Indication: Vomiting
     Route: 048
     Dates: start: 20230808
  56. SULFAMETHOXAZOLE\TRIMETHOPRIM [Concomitant]
     Active Substance: SULFAMETHOXAZOLE\TRIMETHOPRIM
     Dosage: 800-160 MG
     Route: 048
     Dates: start: 20250926
  57. IMITREX [Concomitant]
     Active Substance: SUMATRIPTAN SUCCINATE
     Dosage: MAY REPEAT 2 HOURS LATER. MAXIMUM 200MG/DAY
  58. TRIAMCINOLONE ACETONIDE [Concomitant]
     Active Substance: TRIAMCINOLONE ACETONIDE
     Dosage: 2 TO 3 TIMES DAILY
  59. XCOPRI [Concomitant]
     Active Substance: CENOBAMATE
     Route: 048
  60. Zofran ODT TBDP [Concomitant]
  61. PEPCID [Concomitant]
     Active Substance: FAMOTIDINE
     Indication: Hypersensitivity
  62. HEPARIN [Concomitant]
     Active Substance: HEPARIN SODIUM
     Dosage: 100 UNITS/ML
  63. SOLU-CORTEF [Concomitant]
     Active Substance: HYDROCORTISONE SODIUM SUCCINATE
     Indication: Hypersensitivity
     Dosage: 50-100 MG
     Route: 042
  64. SOLU-MEDROL [Concomitant]
     Active Substance: METHYLPREDNISOLONE SODIUM SUCCINATE
     Indication: Hypersensitivity
     Route: 042
  65. COMPAZINE [Concomitant]
     Active Substance: PROCHLORPERAZINE MALEATE
     Indication: Nausea
     Route: 042
  66. COMPAZINE [Concomitant]
     Active Substance: PROCHLORPERAZINE MALEATE
     Indication: Vomiting

REACTIONS (40)
  - Drug intolerance [Unknown]
  - Off label use [Unknown]
  - Pemphigus [Unknown]
  - Fungal infection [Unknown]
  - Infection [Unknown]
  - Eustachian tube dysfunction [Unknown]
  - Soft tissue swelling [Unknown]
  - Abnormal weight gain [Unknown]
  - Acne [Unknown]
  - Blister [Unknown]
  - Carpal tunnel syndrome [Unknown]
  - Nail disorder [Unknown]
  - Chronic inflammatory demyelinating polyradiculoneuropathy [Unknown]
  - Pain [Unknown]
  - Cognitive disorder [Unknown]
  - Cushing^s syndrome [Unknown]
  - Impaired healing [Unknown]
  - Uterine leiomyoma [Unknown]
  - Urogenital disorder [Unknown]
  - Glaucoma [Unknown]
  - Alopecia [Unknown]
  - Intervertebral disc protrusion [Unknown]
  - Immunodeficiency [Unknown]
  - Neutropenia [Unknown]
  - Obesity [Unknown]
  - Occipital neuralgia [Unknown]
  - Oral pain [Unknown]
  - Oral candidiasis [Unknown]
  - Pruritus [Unknown]
  - Idiopathic intracranial hypertension [Unknown]
  - Pyrexia [Unknown]
  - Sinusitis [Unknown]
  - Scoliosis [Unknown]
  - Sjogren^s syndrome [Unknown]
  - Oral pain [Unknown]
  - Gastric ulcer [Unknown]
  - Tracheomalacia [Unknown]
  - Urinary tract infection [Unknown]
  - Arthralgia [Unknown]
  - Off label use [Unknown]
